FAERS Safety Report 13054834 (Version 2)
Quarter: 2017Q1

REPORT INFORMATION
  Report Type: Spontaneous
  Country: DE (occurrence: DE)
  Receive Date: 20161222
  Receipt Date: 20170103
  Transmission Date: 20170428
  Serious: Yes (Other)
  Sender: FDA-Public Use
  Company Number: DE-TEVA-721459GER

PATIENT
  Age: 79 Year
  Sex: Male
  Weight: 67 kg

DRUGS (2)
  1. PRAVASTATIN. [Suspect]
     Active Substance: PRAVASTATIN
     Indication: BLOOD CHOLESTEROL
     Route: 048
     Dates: start: 20161128, end: 20161202
  2. RAMIPRIL. [Concomitant]
     Active Substance: RAMIPRIL

REACTIONS (6)
  - Dizziness [Recovered/Resolved]
  - Rash pustular [Recovered/Resolved]
  - Pruritus generalised [Recovered/Resolved]
  - Musculoskeletal stiffness [Recovered/Resolved]
  - Tinnitus [Recovered/Resolved]
  - Myalgia [Recovered/Resolved]

NARRATIVE: CASE EVENT DATE: 20161130
